FAERS Safety Report 15634585 (Version 1)
Quarter: 2018Q4

REPORT INFORMATION
  Report Type: Spontaneous
  Country: US (occurrence: US)
  Receive Date: 20181116
  Receipt Date: 20181116
  Transmission Date: 20190205
  Serious: Yes (Disabling, Other)
  Sender: FDA-Public Use
  Company Number: None

PATIENT
  Age: 68 Year
  Sex: Female
  Weight: 102.06 kg

DRUGS (8)
  1. VITAMIN B12 [Concomitant]
     Active Substance: CYANOCOBALAMIN
  2. FUROSEMIDE. [Concomitant]
     Active Substance: FUROSEMIDE
  3. PROTEIN [Concomitant]
     Active Substance: PROTEIN
  4. VITAMIN D [Concomitant]
     Active Substance: CHOLECALCIFEROL
  5. VALSARTAN GENERIC FOR DIOVAN [Suspect]
     Active Substance: VALSARTAN
     Indication: HYPERTENSION
     Dosage: ?          QUANTITY:1 DF DOSAGE FORM;?
     Route: 048
     Dates: end: 20180801
  6. IRBESARTAN. [Concomitant]
     Active Substance: IRBESARTAN
  7. KLOR-CON [Concomitant]
     Active Substance: POTASSIUM CHLORIDE
  8. MULTI VIT-MINERAL [Concomitant]

REACTIONS (9)
  - Peripheral swelling [None]
  - Peripheral coldness [None]
  - Joint swelling [None]
  - Limb discomfort [None]
  - Product substitution issue [None]
  - Product quality issue [None]
  - Restless legs syndrome [None]
  - Product tampering [None]
  - Fatigue [None]
